FAERS Safety Report 11405349 (Version 5)
Quarter: 2017Q4

REPORT INFORMATION
  Report Type: Report from Study
  Country: JP (occurrence: JP)
  Receive Date: 20150821
  Receipt Date: 20171208
  Transmission Date: 20180320
  Serious: Yes (Other)
  Sender: FDA-Public Use
  Company Number: JP-OTSUKA-2015_007683

PATIENT
  Age: 55 Year
  Sex: Female
  Weight: 47.7 kg

DRUGS (15)
  1. TOLVAPTAN [Suspect]
     Active Substance: TOLVAPTAN
     Dosage: 15 MG, QD, IN THE EVENING
     Route: 048
     Dates: start: 20141210, end: 20141219
  2. TOLVAPTAN [Suspect]
     Active Substance: TOLVAPTAN
     Indication: CONGENITAL CYSTIC KIDNEY DISEASE
     Dosage: 60 MG, QD, QAM
     Route: 048
     Dates: start: 20141223, end: 20150119
  3. TOLVAPTAN [Suspect]
     Active Substance: TOLVAPTAN
     Dosage: 45 MG, QD, QAM
     Route: 048
     Dates: start: 20141220, end: 20141222
  4. LASIX M [Concomitant]
     Active Substance: FUROSEMIDE
     Dosage: 160 MG, DAILY DOSE
     Route: 048
     Dates: start: 20150105, end: 20150118
  5. TOLVAPTAN [Suspect]
     Active Substance: TOLVAPTAN
     Dosage: 45 MG, QD, QAM
     Route: 048
     Dates: start: 20141210, end: 20141219
  6. LASIX M [Concomitant]
     Active Substance: FUROSEMIDE
     Dosage: 80 MG, DAILY DOSE
     Route: 048
     Dates: start: 20141222, end: 20150104
  7. LASIX M [Concomitant]
     Active Substance: FUROSEMIDE
     Dosage: 80 MG, QD
     Route: 048
     Dates: start: 20150119, end: 20150802
  8. ZYLORIC [Concomitant]
     Active Substance: ALLOPURINOL
     Indication: PRODUCT USED FOR UNKNOWN INDICATION
     Dosage: 100 MG, DAILY DOSE
     Route: 048
  9. LASIX M [Concomitant]
     Active Substance: FUROSEMIDE
     Indication: PRODUCT USED FOR UNKNOWN INDICATION
     Dosage: 80 MG, DAILY DOSE
     Route: 048
     Dates: end: 20141209
  10. URSO S [Concomitant]
     Indication: PRODUCT USED FOR UNKNOWN INDICATION
     Dosage: 600 MG, DAILY DOSE
     Route: 048
  11. TOLVAPTAN [Suspect]
     Active Substance: TOLVAPTAN
     Dosage: 30 MG, QD, IN THE EVENING
     Route: 048
     Dates: start: 20141223, end: 20150119
  12. LASIX M [Concomitant]
     Active Substance: FUROSEMIDE
     Dosage: 160 MG, QD
     Route: 048
     Dates: start: 20150803
  13. TOLVAPTAN [Suspect]
     Active Substance: TOLVAPTAN
     Dosage: 15 MG, QD, IN THE EVENING
     Route: 048
     Dates: start: 20141220, end: 20141222
  14. ATELEC [Concomitant]
     Active Substance: CILNIDIPINE
     Indication: PRODUCT USED FOR UNKNOWN INDICATION
     Dosage: 20 MG, DAILY DOSE
     Route: 048
     Dates: end: 20150426
  15. BLOPRESS [Concomitant]
     Active Substance: CANDESARTAN CILEXETIL
     Indication: PRODUCT USED FOR UNKNOWN INDICATION
     Dosage: 8 MG, DAILY DOSE
     Route: 048

REACTIONS (7)
  - Renal impairment [Not Recovered/Not Resolved]
  - Nephrogenic anaemia [Recovering/Resolving]
  - Oedema due to renal disease [Recovering/Resolving]
  - Hypokalaemia [Recovering/Resolving]
  - Hypocalcaemia [Not Recovered/Not Resolved]
  - Rhinitis allergic [Recovering/Resolving]
  - Hypertension [Not Recovered/Not Resolved]

NARRATIVE: CASE EVENT DATE: 20141229
